FAERS Safety Report 4342313-8 (Version None)
Quarter: 2004Q2

REPORT INFORMATION
  Report Type: 
  Country: None (occurrence: None)
  Receive Date: 20040416
  Receipt Date: 20040413
  Transmission Date: 20050107
  Serious: Yes (Hospitalization, Disabling)
  Sender: FDA-Public Use
  Company Number: HQWYE146503FEB03

PATIENT
  Age: 59 Year
  Sex: Male
  Weight: 61.29 kg

DRUGS (7)
  1. DIMETAPP [Suspect]
     Indication: HYPERSENSITIVITY
     Dosage: (1-2 TIMES DAILY), ORAL
     Route: 048
     Dates: end: 19941220
  2. DIMETAPP [Suspect]
     Indication: NASOPHARYNGITIS
     Dosage: (1-2 TIMES DAILY), ORAL
     Route: 048
     Dates: end: 19941220
  3. TAVIST D [Suspect]
     Indication: HYPERSENSITIVITY
     Dosage: (1-2 TIMES DAILY), ORAL
     Route: 048
     Dates: end: 19941220
  4. TAVIST D [Suspect]
     Indication: NASOPHARYNGITIS
     Dosage: (1-2 TIMES DAILY), ORAL
     Route: 048
     Dates: end: 19941220
  5. UNKNOWN (UNKNOWN, ) [Concomitant]
     Indication: HYPERSENSITIVITY
     Dosage: (1-2 TIMES DAILY), ORAL
     Route: 048
     Dates: end: 19941220
  6. UNKNOWN (UNKNOWN, ) [Concomitant]
     Indication: NASOPHARYNGITIS
     Dosage: (1-2 TIMES DAILY), ORAL
     Route: 048
     Dates: end: 19941220
  7. PRIMATENE MIST (EPINEPHRINE) [Concomitant]

REACTIONS (4)
  - BLOOD PRESSURE INCREASED [None]
  - BRAIN OEDEMA [None]
  - CEREBRAL HAEMORRHAGE [None]
  - CEREBROVASCULAR ACCIDENT [None]
